FAERS Safety Report 10397414 (Version 6)
Quarter: 2015Q3

REPORT INFORMATION
  Report Type: Spontaneous
  Country: US (occurrence: US)
  Receive Date: 20140820
  Receipt Date: 20150818
  Transmission Date: 20151125
  Serious: Yes (Hospitalization, Other)
  Sender: FDA-Public Use
  Company Number: US-PFIZER INC-2014231919

PATIENT
  Age: 49 Year
  Sex: Female
  Weight: 113 kg

DRUGS (8)
  1. LYRICA [Suspect]
     Active Substance: PREGABALIN
     Dosage: 75 MG, 1X/DAY (ONCE A DAY AT NIGHT)
     Route: 048
     Dates: start: 2012
  2. PRAVASTATIN [Suspect]
     Active Substance: PRAVASTATIN\PRAVASTATIN SODIUM
     Indication: BLOOD CHOLESTEROL ABNORMAL
     Dosage: 40 MG, UNK
  3. LISINOPRIL HCTZ [Suspect]
     Active Substance: HYDROCHLOROTHIAZIDE\LISINOPRIL
     Indication: BLOOD PRESSURE ABNORMAL
     Dosage: 20-12.5
  4. LAMICTAL [Concomitant]
     Active Substance: LAMOTRIGINE
     Dosage: UNK
  5. COUMADIN [Suspect]
     Active Substance: WARFARIN SODIUM
     Indication: ANTICOAGULANT THERAPY
     Dosage: 7.5
  6. ULTRAM [Suspect]
     Active Substance: TRAMADOL HYDROCHLORIDE
     Indication: PAIN
     Dosage: 50 MG, UNK
  7. LYRICA [Suspect]
     Active Substance: PREGABALIN
     Indication: FIBROMYALGIA
     Dosage: 75 MG, 2X/DAY (TWO TIMES DAILY (BID))
     Route: 048
  8. LYRICA [Suspect]
     Active Substance: PREGABALIN
     Dosage: 75 MG X 2
     Route: 048

REACTIONS (4)
  - Cerebrovascular accident [Recovered/Resolved with Sequelae]
  - Aphasia [Not Recovered/Not Resolved]
  - Hemiplegic migraine [Unknown]
  - Embolism [Recovered/Resolved]

NARRATIVE: CASE EVENT DATE: 20131226
